FAERS Safety Report 10328854 (Version 3)
Quarter: 2014Q4

REPORT INFORMATION
  Report Type: Spontaneous
  Country: JP (occurrence: None)
  Receive Date: 20140717
  Receipt Date: 20141017
  Transmission Date: 20150528
  Serious: Yes (Other)
  Sender: FDA-Public Use
  Company Number: 2014-JP-0053

PATIENT
  Age: 48 Year
  Sex: Female

DRUGS (1)
  1. FARESTON (NON-US) (TOREMIFENE):FORMULATION TABLET [Suspect]
     Active Substance: TOREMIFENE CITRATE
     Indication: BREAST CANCER
     Dosage: 40 MG PER DAY; 40 MG, ORAL
     Route: 048
     Dates: start: 200304, end: 200306

REACTIONS (2)
  - Second primary malignancy [None]
  - Endometrial cancer [None]

NARRATIVE: CASE EVENT DATE: 200305
